FAERS Safety Report 21749276 (Version 1)
Quarter: 2022Q4

REPORT INFORMATION
  Report Type: Spontaneous
  Country: US (occurrence: None)
  Receive Date: 20221217
  Receipt Date: 20221217
  Transmission Date: 20230112
  Serious: Yes (Death, Hospitalization)
  Sender: FDA-Public Use
  Company Number: None

PATIENT
  Sex: Male
  Weight: 68 kg

DRUGS (4)
  1. DACARBAZINE [Suspect]
     Active Substance: DACARBAZINE
  2. DOXORUBICIN HYDROCHLORIDE [Concomitant]
     Active Substance: DOXORUBICIN HYDROCHLORIDE
  3. BRENTUXIMAB VEDOTIN [Concomitant]
     Active Substance: BRENTUXIMAB VEDOTIN
  4. VINBLASTINE SULFATE [Concomitant]
     Active Substance: VINBLASTINE SULFATE

REACTIONS (15)
  - Hypotension [None]
  - Tachycardia [None]
  - Klebsiella sepsis [None]
  - Escherichia sepsis [None]
  - Intestinal obstruction [None]
  - Ileus [None]
  - Hypophagia [None]
  - Pancreatic failure [None]
  - Pancytopenia [None]
  - Encephalopathy [None]
  - Tachypnoea [None]
  - Hypervolaemia [None]
  - Pneumonia [None]
  - Oedema [None]
  - Hypernatraemia [None]

NARRATIVE: CASE EVENT DATE: 20201118
